FAERS Safety Report 8943447 (Version 1)
Quarter: 2012Q4

REPORT INFORMATION
  Report Type: 
  Country: GB (occurrence: GB)
  Receive Date: 20121203
  Receipt Date: 20121203
  Transmission Date: 20130627
  Serious: Yes (Death, Other)
  Sender: FDA-Public Use
  Company Number: GB-PFIZER INC-2012301605

PATIENT

DRUGS (1)
  1. PREGABALIN [Suspect]

REACTIONS (2)
  - Death [Fatal]
  - Drug abuse [Fatal]
